FAERS Safety Report 12651037 (Version 1)
Quarter: 2016Q3

REPORT INFORMATION
  Report Type: Spontaneous
  Country: US (occurrence: US)
  Receive Date: 20160815
  Receipt Date: 20160815
  Transmission Date: 20161109
  Serious: No
  Sender: FDA-Public Use
  Company Number: US-JAZZ-2016-US-005259

PATIENT
  Sex: Female

DRUGS (81)
  1. PYRIDIUM [Concomitant]
     Active Substance: PHENAZOPYRIDINE
  2. METHOTREXATE. [Concomitant]
     Active Substance: METHOTREXATE
  3. CEREFOLIN NAC [Concomitant]
  4. DILAUDID [Concomitant]
     Active Substance: HYDROMORPHONE HYDROCHLORIDE
  5. REMICADE [Concomitant]
     Active Substance: INFLIXIMAB
  6. MIRALAX [Concomitant]
     Active Substance: POLYETHYLENE GLYCOL 3350
  7. CYMBALTA [Concomitant]
     Active Substance: DULOXETINE HYDROCHLORIDE
  8. CALCIUM [Concomitant]
     Active Substance: CALCIUM
  9. MELATONIN [Concomitant]
     Active Substance: MELATONIN
  10. MEPERIDINE HCL [Concomitant]
     Active Substance: MEPERIDINE HYDROCHLORIDE
  11. POTASSIUM [Concomitant]
     Active Substance: POTASSIUM
  12. ARIXTRA [Concomitant]
     Active Substance: FONDAPARINUX SODIUM
  13. MYRBETRIQ [Concomitant]
     Active Substance: MIRABEGRON
  14. ACTOS [Concomitant]
     Active Substance: PIOGLITAZONE HYDROCHLORIDE
  15. MESTINON [Concomitant]
     Active Substance: PYRIDOSTIGMINE BROMIDE
  16. FOLIC ACID. [Concomitant]
     Active Substance: FOLIC ACID
  17. LIDOCAINE. [Concomitant]
     Active Substance: LIDOCAINE
  18. MAGNESIUM GLUCONATE [Concomitant]
     Active Substance: MAGNESIUM GLUCONATE
  19. PENNSAID [Concomitant]
     Active Substance: DICLOFENAC SODIUM
  20. PHENOBARBITAL. [Concomitant]
     Active Substance: PHENOBARBITAL
  21. VITAMIN E [Concomitant]
     Active Substance: .ALPHA.-TOCOPHEROL
  22. AMBIEN [Concomitant]
     Active Substance: ZOLPIDEM TARTRATE
  23. PROTONIX [Concomitant]
     Active Substance: PANTOPRAZOLE SODIUM
  24. TOPROL XL [Concomitant]
     Active Substance: METOPROLOL SUCCINATE
  25. FENTANYL. [Concomitant]
     Active Substance: FENTANYL
  26. TOVIAZ [Concomitant]
     Active Substance: FESOTERODINE FUMARATE
  27. BOTOX [Concomitant]
     Active Substance: ONABOTULINUMTOXINA
  28. XYREM [Suspect]
     Active Substance: SODIUM OXYBATE
     Dosage: DOSE ADJUSTMENTS
     Route: 048
  29. COUMADIN [Concomitant]
     Active Substance: WARFARIN SODIUM
  30. OXYCODONE HYDROCHLORIDE. [Concomitant]
     Active Substance: OXYCODONE HYDROCHLORIDE
  31. ZOLPIDEM [Concomitant]
     Active Substance: ZOLPIDEM\ZOLPIDEM TARTRATE
  32. FLONASE [Concomitant]
     Active Substance: FLUTICASONE PROPIONATE
  33. COLCRYS [Concomitant]
     Active Substance: COLCHICINE
  34. NUVIGIL [Concomitant]
     Active Substance: ARMODAFINIL
  35. GAS RELIEF [Concomitant]
     Active Substance: DIMETHICONE
  36. NUVARING [Concomitant]
     Active Substance: ETHINYL ESTRADIOL\ETONOGESTREL
  37. FISH OIL [Concomitant]
     Active Substance: FISH OIL
  38. CLOTRIMAZOLE AND BETAMETHASONE DIPROPIONATE [Concomitant]
     Active Substance: BETAMETHASONE\BETAMETHASONE DIPROPIONATE\CLOTRIMAZOLE
  39. NYSTATIN. [Concomitant]
     Active Substance: NYSTATIN
  40. MECLIZINE HCL [Concomitant]
     Active Substance: MECLIZINE HYDROCHLORIDE
  41. RELPAX [Concomitant]
     Active Substance: ELETRIPTAN HYDROBROMIDE
  42. MAXALT [Concomitant]
     Active Substance: RIZATRIPTAN BENZOATE
  43. MORPHINE SULF [Concomitant]
     Active Substance: MORPHINE SULFATE
  44. LAMICTAL [Concomitant]
     Active Substance: LAMOTRIGINE
  45. PERCOCET [Concomitant]
     Active Substance: ACETAMINOPHEN\OXYCODONE HYDROCHLORIDE
  46. DIFLUCAN [Concomitant]
     Active Substance: FLUCONAZOLE
  47. BACLOFEN. [Concomitant]
     Active Substance: BACLOFEN
  48. LODINE [Concomitant]
     Active Substance: ETODOLAC
  49. ADDERALL [Concomitant]
     Active Substance: AMPHETAMINE ASPARTATE\AMPHETAMINE SULFATE\DEXTROAMPHETAMINE SACCHARATE\DEXTROAMPHETAMINE SULFATE
  50. FIORINAL WITH CODEINE [Concomitant]
     Active Substance: ASPIRIN\BUTALBITAL\CAFFEINE\CODEINE PHOSPHATE
  51. CETIRIZINE HCL [Concomitant]
     Active Substance: CETIRIZINE HYDROCHLORIDE
  52. IRON [Concomitant]
     Active Substance: IRON
  53. PERIDEX [Concomitant]
     Active Substance: CHLORHEXIDINE GLUCONATE
  54. PRADAXA [Concomitant]
     Active Substance: DABIGATRAN ETEXILATE MESYLATE
  55. SYSTANE (HYPROMELLOSE 2910 (4000 MPA.S)) [Concomitant]
     Active Substance: HYPROMELLOSE 2910 (4000 MPA.S)
  56. CYCLOSPORINE. [Concomitant]
     Active Substance: CYCLOSPORINE
  57. RANITIDINE. [Concomitant]
     Active Substance: RANITIDINE
  58. ACARBOSE. [Concomitant]
     Active Substance: ACARBOSE
  59. NORETHINDRONE. [Concomitant]
     Active Substance: NORETHINDRONE
  60. CELLCEPT [Concomitant]
     Active Substance: MYCOPHENOLATE MOFETIL\MYCOPHENOLATE MOFETIL HYDROCHLORIDE
  61. BISOPROLOL FUMARATE. [Concomitant]
     Active Substance: BISOPROLOL FUMARATE
  62. DULCOLAX NOS [Concomitant]
     Active Substance: BISACODYL OR DOCUSATE SODIUM
  63. HYDROCODONE BITARTRATE AND ACETAMINOPHEN [Concomitant]
     Active Substance: ACETAMINOPHEN\HYDROCODONE BITARTRATE
  64. VENTOLIN HFA [Concomitant]
     Active Substance: ALBUTEROL SULFATE
  65. XYREM [Suspect]
     Active Substance: SODIUM OXYBATE
     Indication: NARCOLEPSY
     Dosage: 2.25 G, BID
     Route: 048
     Dates: start: 201207, end: 201208
  66. XYREM [Suspect]
     Active Substance: SODIUM OXYBATE
     Dosage: 4.5 G, BID
     Route: 048
     Dates: start: 201308
  67. LEUCOVORIN CALCIUM. [Concomitant]
     Active Substance: LEUCOVORIN CALCIUM
  68. VITAMIN D [Concomitant]
     Active Substance: CHOLECALCIFEROL
  69. DIAZEPAM. [Concomitant]
     Active Substance: DIAZEPAM
  70. NALTREXONE HCL [Concomitant]
     Active Substance: NALTREXONE HYDROCHLORIDE
  71. LYRICA [Concomitant]
     Active Substance: PREGABALIN
  72. GLYCERIN. [Concomitant]
     Active Substance: GLYCERIN
  73. PREDNISONE. [Concomitant]
     Active Substance: PREDNISONE
  74. GLYSET [Concomitant]
     Active Substance: MIGLITOL
  75. COLACE [Concomitant]
     Active Substance: DOCUSATE SODIUM
  76. HYDROXYZINE HCL [Concomitant]
     Active Substance: HYDROXYZINE HYDROCHLORIDE
  77. PHENTERMINE HYDROCHLORIDE. [Concomitant]
     Active Substance: PHENTERMINE HYDROCHLORIDE
  78. DEXAMETHASONE. [Concomitant]
     Active Substance: DEXAMETHASONE
  79. GLUCOSAMINE [Concomitant]
     Active Substance: GLUCOSAMINE
  80. MULTIVITAMIN [Concomitant]
     Active Substance: VITAMINS
  81. TRAMADOL. [Concomitant]
     Active Substance: TRAMADOL

REACTIONS (1)
  - Influenza [Unknown]
